FAERS Safety Report 5951554-5 (Version None)
Quarter: 2008Q4

REPORT INFORMATION
  Report Type: 
  Country: None (occurrence: None)
  Receive Date: 20081022
  Receipt Date: 20080714
  Transmission Date: 20090506
  Serious: No
  Sender: FDA-Public Use
  Company Number: ALL1-2008-02001

PATIENT
  Age: 10 Year
  Sex: Male
  Weight: 32.2 kg

DRUGS (3)
  1. VYVANSE [Suspect]
     Indication: ATTENTION DEFICIT/HYPERACTIVITY DISORDER
     Dosage: 30 MG, 1X/DAY:QD, ORAL
     Route: 048
     Dates: start: 20071201, end: 20080401
  2. MULTIVITAMIN /00831701/ (VITAMINS NOS) [Concomitant]
  3. VITAMIN C /00008001/ (ASCORBIC ACID) [Concomitant]

REACTIONS (1)
  - WEIGHT DECREASED [None]
